FAERS Safety Report 9257112 (Version 1)
Quarter: 2013Q2

REPORT INFORMATION
  Report Type: Spontaneous
  Country: US (occurrence: None)
  Receive Date: 20130424
  Receipt Date: 20130424
  Transmission Date: 20140414
  Serious: Yes (Other)
  Sender: FDA-Public Use
  Company Number: JPI-P-021990

PATIENT
  Age: 26 Year
  Sex: Male
  Weight: 54.43 kg

DRUGS (3)
  1. XYREM (500 MILLIGRAM/MILLILITERS, SOLUTION) (SODIUM OXYBATE) [Suspect]
     Indication: CATAPLEXY
     Dosage: (2.25 GM, 2 IN 1 D)
     Route: 048
     Dates: start: 20100510, end: 2010
  2. RILUZOLE [Suspect]
     Indication: AMYOTROPHIC LATERAL SCLEROSIS
     Dosage: (50 MG, 2 IN 1 D)
     Route: 048
     Dates: start: 2012, end: 2012
  3. ALLERGY MEDICATION [Suspect]
     Indication: HYPERSENSITIVITY
     Dates: end: 2012

REACTIONS (19)
  - Back disorder [None]
  - Back pain [None]
  - Amyotrophic lateral sclerosis [None]
  - Spinal cord herniation [None]
  - Self-medication [None]
  - Drug interaction [None]
  - Insomnia [None]
  - Acne [None]
  - Diabetes mellitus [None]
  - Blood uric acid increased [None]
  - Abasia [None]
  - Therapeutic response delayed [None]
  - Blood glucose decreased [None]
  - Blood glucose fluctuation [None]
  - Fatigue [None]
  - Anxiety [None]
  - Depression [None]
  - Cough [None]
  - Initial insomnia [None]
